FAERS Safety Report 15378484 (Version 5)
Quarter: 2018Q4

REPORT INFORMATION
  Report Type: Spontaneous
  Country: HU (occurrence: HU)
  Receive Date: 20180913
  Receipt Date: 20181102
  Transmission Date: 20190204
  Serious: No
  Sender: FDA-Public Use
  Company Number: HU-PFIZER INC-2018357643

PATIENT
  Age: 24 Year
  Sex: Female

DRUGS (21)
  1. PROPOFOL. [Suspect]
     Active Substance: PROPOFOL
     Dosage: 2 UG/ML, UNK
     Route: 065
  2. HEPARIN SODIUM. [Suspect]
     Active Substance: HEPARIN SODIUM
     Dosage: 1000 IU, UNK
     Route: 065
  3. PIPECURONIUM BROMIDE. [Suspect]
     Active Substance: PIPECURONIUM BROMIDE
     Dosage: 4 MG, UNK
     Route: 040
  4. ISOFLURANE. [Suspect]
     Active Substance: ISOFLURANE
     Dosage: UNK (0.5-1.0%)
     Route: 065
  5. PENAMECILLIN [Suspect]
     Active Substance: PENAMECILLIN
     Indication: STREPTOCOCCAL INFECTION
     Dosage: UNK
     Route: 065
  6. MAGNESIUM SULFATE. [Concomitant]
     Active Substance: MAGNESIUM SULFATE
     Dosage: 1 G, UNK
     Route: 040
  7. MIDAZOLAM [Suspect]
     Active Substance: MIDAZOLAM HYDROCHLORIDE
     Dosage: 2 UG/ML, UNK
     Route: 065
  8. SUFENTANIL [Suspect]
     Active Substance: SUFENTANIL
     Dosage: UNK (0.25-3.0)
  9. EPHEDRINE. [Suspect]
     Active Substance: EPHEDRINE
     Dosage: 5 MG, TID
     Route: 040
  10. METOPROLOL. [Suspect]
     Active Substance: METOPROLOL
     Indication: SINUS TACHYCARDIA
     Dosage: UNK
     Route: 065
  11. HEPARIN SODIUM. [Suspect]
     Active Substance: HEPARIN SODIUM
     Dosage: 2000 IU, UNK
     Route: 065
  12. MIDAZOLAM [Suspect]
     Active Substance: MIDAZOLAM HYDROCHLORIDE
     Dosage: 5 MG, UNK
     Route: 065
  13. SUFENTANIL [Suspect]
     Active Substance: SUFENTANIL
     Dosage: 10 UG, UNK
     Route: 065
  14. ENOXAPARIN SODIUM. [Suspect]
     Active Substance: ENOXAPARIN SODIUM
     Dosage: UNK
     Route: 065
  15. PROTAMINE SULFATE. [Suspect]
     Active Substance: PROTAMINE SULFATE
     Dosage: 200 MG, UNK
     Route: 065
  16. PANTOPRAZOLE [Suspect]
     Active Substance: PANTOPRAZOLE
     Indication: PREMEDICATION
     Dosage: 40 MG, UNK
     Route: 042
  17. AMPICILLIN [Suspect]
     Active Substance: AMPICILLIN
     Dosage: 2 G, Q4HR
     Route: 065
  18. MIDAZOLAM [Suspect]
     Active Substance: MIDAZOLAM HYDROCHLORIDE
     Indication: PREMEDICATION
     Dosage: 7.5 MG, UNK
     Route: 048
  19. DIGOXIN. [Suspect]
     Active Substance: DIGOXIN
     Dosage: UNK
     Route: 065
  20. SEVOFLURANE. [Suspect]
     Active Substance: SEVOFLURANE
     Dosage: 1.5 TO 2.0%
     Route: 065
  21. EPHEDRINE. [Suspect]
     Active Substance: EPHEDRINE
     Dosage: UNK (CONTINUAL INFUSION OF EPHEDRINE (25 MG/H)
     Route: 041

REACTIONS (1)
  - Product use in unapproved indication [Unknown]
